FAERS Safety Report 10929881 (Version 2)
Quarter: 2015Q1

REPORT INFORMATION
  Report Type: Spontaneous
  Country: JP (occurrence: None)
  Receive Date: 20150317
  Receipt Date: 20150330
  Transmission Date: 20150721
  Serious: Yes (Death)
  Sender: FDA-Public Use
  Company Number: JP-20150074

PATIENT
  Age: 76 Year
  Sex: Female

DRUGS (3)
  1. LIPIODOL ULTRA-FLUIDE [Suspect]
     Active Substance: ETHIODIZED OIL
     Indication: THERAPEUTIC EMBOLISATION
     Dosage: UNK (1 IN 1 D), INTRA-ATERIAL
     Route: 013
     Dates: start: 201409, end: 201409
  2. PACLITAXEL. [Concomitant]
     Active Substance: PACLITAXEL
  3. CISPLATIN. [Concomitant]
     Active Substance: CISPLATIN

REACTIONS (3)
  - Hypoxia [None]
  - Respiratory failure [None]
  - Product use issue [None]

NARRATIVE: CASE EVENT DATE: 201409
